FAERS Safety Report 6323487-6 (Version None)
Quarter: 2009Q3

REPORT INFORMATION
  Report Type: 
  Country: None (occurrence: None)
  Receive Date: 20090824
  Receipt Date: 20090612
  Transmission Date: 20100115
  Serious: No
  Sender: FDA-Public Use
  Company Number: US-ABBOTT-09P-163-0579528-00

PATIENT
  Sex: Female
  Weight: 104.42 kg

DRUGS (5)
  1. NIASPAN [Suspect]
     Indication: HIGH DENSITY LIPOPROTEIN DECREASED
     Dosage: 1000MG EVERY NIGHT
     Dates: start: 20090401
  2. NIASPAN [Suspect]
     Indication: CARDIOVASCULAR DISORDER
     Dosage: 500MG EVERY NIGHT FOR 6 WEEKS
     Dates: start: 20090301, end: 20090401
  3. ASPIRIN [Concomitant]
     Indication: DRUG USE FOR UNKNOWN INDICATION
     Route: 048
  4. GLUCOPHAGE [Concomitant]
     Indication: DRUG USE FOR UNKNOWN INDICATION
     Dosage: DAILY
     Route: 048
  5. AMARYL [Concomitant]
     Indication: DRUG USE FOR UNKNOWN INDICATION
     Dosage: DAILY
     Route: 048

REACTIONS (1)
  - BLOOD GLUCOSE INCREASED [None]
